FAERS Safety Report 8777834 (Version 1)
Quarter: 2012Q4

REPORT INFORMATION
  Report Type: Report from Study
  Country: US (occurrence: US)
  Receive Date: 20120912
  Receipt Date: 20120912
  Transmission Date: 20130627
  Serious: No
  Sender: FDA-Public Use
  Company Number: US-VERTEX PHARMACEUTICAL INC.-AE-2012-004803

PATIENT
  Age: 53 Year
  Sex: Male
  Weight: 80 kg

DRUGS (5)
  1. INCIVEK [Suspect]
     Indication: HEPATITIS C
     Route: 048
     Dates: start: 20120320, end: 20120521
  2. PEGASYS [Concomitant]
     Indication: HEPATITIS C
     Route: 058
     Dates: start: 20120320, end: 20120521
  3. RIBAVIRIN [Concomitant]
     Indication: HEPATITIS C
     Route: 048
     Dates: start: 20120320, end: 20120521
  4. LEVOTHYROXINE [Concomitant]
  5. PRAVASTATIN [Concomitant]

REACTIONS (12)
  - Vision blurred [Unknown]
  - Influenza like illness [Unknown]
  - Photophobia [Unknown]
  - Paraesthesia [Unknown]
  - Dehydration [Unknown]
  - Headache [Unknown]
  - Injection site pruritus [Unknown]
  - Fatigue [Unknown]
  - Rash [Recovered/Resolved]
  - Haemorrhoids [Unknown]
  - Dysgeusia [Unknown]
  - Pruritus generalised [Recovered/Resolved]
